FAERS Safety Report 8316826-8 (Version None)
Quarter: 2012Q2

REPORT INFORMATION
  Report Type: 
  Country: None (occurrence: None)
  Receive Date: 20120425
  Receipt Date: 20120419
  Transmission Date: 20120825
  Serious: Yes (Hospitalization, Other)
  Sender: FDA-Public Use
  Company Number: 2006-144661-NL

PATIENT
  Age: 25 Year
  Sex: Female
  Weight: 83.9154 kg

DRUGS (10)
  1. AMOXICILLIN [Concomitant]
  2. NEURONTIN [Concomitant]
  3. COUMADIN [Suspect]
     Dosage: 600
     Dates: start: 20060501
  4. NOREL SR [Concomitant]
  5. RPOPRANOLOL [Concomitant]
  6. APAP W/ CODEINE [Concomitant]
  7. AZITHROMYCIN [Concomitant]
  8. CIPRODEX [Concomitant]
  9. TYLENOL W/ CODEINE NO. 3 [Concomitant]
  10. NUVARING [Suspect]
     Indication: CONTRACEPTION
     Dosage: QM;VAGINAL
     Route: 067
     Dates: start: 20060126, end: 20060525

REACTIONS (42)
  - BLOOD TRIGLYCERIDES INCREASED [None]
  - CHEST PAIN [None]
  - NAUSEA [None]
  - EAR INFECTION [None]
  - SCLERAL HAEMORRHAGE [None]
  - BACTERIAL TEST POSITIVE [None]
  - URINARY TRACT INFECTION [None]
  - NEPHROLITHIASIS [None]
  - COUGH [None]
  - CEREBROVASCULAR ACCIDENT [None]
  - EFFUSION [None]
  - HYDRONEPHROSIS [None]
  - MENORRHAGIA [None]
  - LOW DENSITY LIPOPROTEIN INCREASED [None]
  - ERYTHEMA [None]
  - RHINORRHOEA [None]
  - VOMITING [None]
  - CEREBRAL THROMBOSIS [None]
  - TREATMENT NONCOMPLIANCE [None]
  - BACK PAIN [None]
  - DYSPNOEA [None]
  - RECTAL HAEMORRHAGE [None]
  - HYPERHIDROSIS [None]
  - HYPOACUSIS [None]
  - HAEMATURIA [None]
  - SACROILIITIS [None]
  - OVARIAN CYST [None]
  - ASTHENIA [None]
  - SUBARACHNOID HAEMORRHAGE [None]
  - TRANSVERSE SINUS THROMBOSIS [None]
  - TREMOR [None]
  - CEREBRAL INFARCTION [None]
  - AMENORRHOEA [None]
  - TYMPANIC MEMBRANE DISORDER [None]
  - CYSTITIS HAEMORRHAGIC [None]
  - OROPHARYNGEAL PAIN [None]
  - MUSCLE SPASMS [None]
  - INFLAMMATION [None]
  - BLOOD CHOLESTEROL INCREASED [None]
  - BLOOD PRESSURE INCREASED [None]
  - DISEASE RECURRENCE [None]
  - DIARRHOEA [None]
